FAERS Safety Report 26004818 (Version 2)
Quarter: 2025Q4

REPORT INFORMATION
  Report Type: Report from Study
  Country: US (occurrence: US)
  Receive Date: 20251106
  Receipt Date: 20251112
  Transmission Date: 20260118
  Serious: Yes (Hospitalization, Other)
  Sender: ABBVIE
  Company Number: US-ABBVIE-6531958

PATIENT
  Age: 48 Year
  Sex: Male
  Weight: 92.079 kg

DRUGS (2)
  1. VENCLEXTA [Suspect]
     Active Substance: VENETOCLAX
     Indication: Chronic lymphocytic leukaemia
     Route: 048
     Dates: start: 202504
  2. VENCLEXTA [Suspect]
     Active Substance: VENETOCLAX
     Indication: Chronic lymphocytic leukaemia
     Route: 048
     Dates: start: 202410

REACTIONS (5)
  - Neuropathy peripheral [Unknown]
  - Foot amputation [Recovered/Resolved]
  - Osteomyelitis [Unknown]
  - Blister [Unknown]
  - Leg amputation [Unknown]

NARRATIVE: CASE EVENT DATE: 20250101
